FAERS Safety Report 18969796 (Version 2)
Quarter: 2021Q1

REPORT INFORMATION
  Report Type: Spontaneous
  Country: PT (occurrence: PT)
  Receive Date: 20210304
  Receipt Date: 20210312
  Transmission Date: 20210420
  Serious: Yes (Death, Hospitalization, Other)
  Sender: FDA-Public Use
  Company Number: PT-TEVA-2021-PT-1885542

PATIENT
  Age: 73 Year
  Sex: Female

DRUGS (6)
  1. SIMVASTATINE [Concomitant]
     Active Substance: SIMVASTATIN
     Route: 048
  2. DIOSMIN [Concomitant]
     Active Substance: DIOSMIN
     Route: 048
  3. GALANTAMINE. [Suspect]
     Active Substance: GALANTAMINE
     Indication: DEMENTIA ALZHEIMER^S TYPE
     Route: 048
  4. LEVOCETIRIZINE [Concomitant]
     Active Substance: LEVOCETIRIZINE
     Route: 048
  5. IDEBENONE [Concomitant]
     Active Substance: IDEBENONE
     Route: 048
  6. OLANZAPINE. [Concomitant]
     Active Substance: OLANZAPINE
     Indication: DEMENTIA ALZHEIMER^S TYPE
     Route: 048

REACTIONS (1)
  - Hepatitis toxic [Fatal]
